FAERS Safety Report 5027669-5 (Version None)
Quarter: 2006Q2

REPORT INFORMATION
  Report Type: 
  Country: None (occurrence: None)
  Receive Date: 20060616
  Receipt Date: 20060607
  Transmission Date: 20061013
  Serious: Yes (Other)
  Sender: FDA-Public Use
  Company Number: PT-BRISTOL-MYERS SQUIBB COMPANY-13403811

PATIENT

DRUGS (1)
  1. ZERIT [Suspect]

REACTIONS (1)
  - OROPHARYNGEAL CANCER STAGE UNSPECIFIED [None]
